FAERS Safety Report 7534674-3 (Version None)
Quarter: 2011Q2

REPORT INFORMATION
  Report Type: 
  Country: None (occurrence: None)
  Receive Date: 20110609
  Receipt Date: 20110408
  Transmission Date: 20111010
  Serious: No
  Sender: FDA-Public Use
  Company Number: PHHY2011CA24264

PATIENT
  Sex: Female

DRUGS (1)
  1. ZOMETA [Suspect]
     Indication: MULTIPLE MYELOMA
     Dosage: 4 MG, QMO
     Route: 042
     Dates: start: 20110210

REACTIONS (6)
  - COUGH [None]
  - PROTEIN TOTAL DECREASED [None]
  - UPPER RESPIRATORY TRACT INFECTION [None]
  - BLOOD CHLORIDE INCREASED [None]
  - RED CELL DISTRIBUTION WIDTH INCREASED [None]
  - LYMPHOCYTE COUNT DECREASED [None]
